FAERS Safety Report 20032494 (Version 1)
Quarter: 2021Q4

REPORT INFORMATION
  Report Type: Report from Study
  Country: JP (occurrence: JP)
  Receive Date: 20211103
  Receipt Date: 20211103
  Transmission Date: 20220303
  Serious: Yes (Life-Threatening, Hospitalization)
  Sender: FDA-Public Use
  Company Number: JP-JNJFOC-20210904891

PATIENT
  Age: 65 Year
  Sex: Male
  Weight: 56 kg

DRUGS (35)
  1. IBRUTINIB [Suspect]
     Active Substance: IBRUTINIB
     Indication: Chronic graft versus host disease
     Route: 048
     Dates: start: 20190220, end: 20210825
  2. IBRUTINIB [Suspect]
     Active Substance: IBRUTINIB
     Route: 048
     Dates: start: 20210609
  3. IBRUTINIB [Suspect]
     Active Substance: IBRUTINIB
     Route: 048
     Dates: start: 20210830, end: 20210929
  4. LANSOPRAZOLE [Concomitant]
     Active Substance: LANSOPRAZOLE
     Indication: Prophylaxis against gastrointestinal ulcer
     Route: 048
  5. BEZAFIBRATE [Concomitant]
     Active Substance: BEZAFIBRATE
     Indication: Dyslipidaemia
     Route: 048
  6. ZETIA [Concomitant]
     Active Substance: EZETIMIBE
     Indication: Dyslipidaemia
     Route: 048
  7. ALENDRONATE SODIUM [Concomitant]
     Active Substance: ALENDRONATE SODIUM
     Indication: Osteoporosis prophylaxis
     Route: 048
  8. FEBUXOSTAT [Concomitant]
     Active Substance: FEBUXOSTAT
     Indication: Hyperuricaemia
     Route: 048
  9. ACYCLOVIR [Concomitant]
     Active Substance: ACYCLOVIR
     Indication: Infection prophylaxis
     Route: 048
  10. URSODIOL [Concomitant]
     Active Substance: URSODIOL
     Indication: Hepatitis
     Route: 048
  11. FLUCONAZOLE [Concomitant]
     Active Substance: FLUCONAZOLE
     Indication: Infection prophylaxis
     Route: 048
     Dates: start: 20190218
  12. DIFLUCORTOLONE VALERATE [Concomitant]
     Active Substance: DIFLUCORTOLONE VALERATE
     Indication: Chronic graft versus host disease
     Route: 061
  13. AZULENE [SODIUM GUALENATE HYDRATE] [Concomitant]
     Indication: Chronic graft versus host disease
  14. HYALURONATE SODIUM [Concomitant]
     Active Substance: HYALURONATE SODIUM
     Indication: Chronic graft versus host disease
     Route: 047
  15. GENTAMICIN [Concomitant]
     Active Substance: GENTAMICIN
     Indication: Acne
     Route: 061
     Dates: start: 20190306
  16. GENTAMICIN [Concomitant]
     Active Substance: GENTAMICIN
     Indication: Paronychia
  17. SYMBICORT [Concomitant]
     Active Substance: BUDESONIDE\FORMOTEROL FUMARATE DIHYDRATE
     Indication: Bronchitis
     Dosage: 2 PUFF
  18. SPIRIVA [Concomitant]
     Active Substance: TIOTROPIUM BROMIDE MONOHYDRATE
     Indication: Bronchitis
     Dosage: 1 PUFF
  19. SILODOSIN [Concomitant]
     Active Substance: SILODOSIN
     Indication: Urinary retention
     Route: 048
     Dates: start: 20190517
  20. SILODOSIN [Concomitant]
     Active Substance: SILODOSIN
     Indication: Benign prostatic hyperplasia
  21. NADIFLOXACIN [Concomitant]
     Active Substance: NADIFLOXACIN
     Indication: Acne
     Dosage: 1 APPLICATION
     Route: 061
     Dates: start: 20191001
  22. SAHNE [Concomitant]
     Indication: Skin disorder prophylaxis
     Route: 061
     Dates: start: 20190306
  23. LOCOID [Concomitant]
     Active Substance: HYDROCORTISONE BUTYRATE
     Indication: Chronic graft versus host disease
     Route: 061
     Dates: start: 20190424
  24. PETROLATUM [Concomitant]
     Active Substance: PETROLATUM
     Indication: Skin disorder prophylaxis
     Route: 061
     Dates: start: 20191126
  25. DIPHENHYDRAMINE [Concomitant]
     Active Substance: DIPHENHYDRAMINE
     Indication: Chronic graft versus host disease
     Route: 061
     Dates: start: 20191030
  26. NEO-MEDROL [METHYLPREDNISOLONE SODIUM PHOSPHATE;NEOMYCIN SULFATE] [Concomitant]
     Indication: Chronic graft versus host disease
     Route: 061
     Dates: start: 20200415
  27. ATOVAQUONE [Concomitant]
     Active Substance: ATOVAQUONE
     Indication: Infection prophylaxis
     Route: 048
     Dates: start: 20200514
  28. CHONDROITIN SULFATE (BOVINE) [Concomitant]
     Active Substance: CHONDROITIN SULFATE (BOVINE)
     Indication: Skin disorder prophylaxis
     Route: 061
     Dates: start: 20210126
  29. DEXAMETHASONE [Concomitant]
     Active Substance: DEXAMETHASONE
     Indication: Stomatitis
     Route: 061
     Dates: start: 20210203
  30. REBAMIPIDE [Concomitant]
     Active Substance: REBAMIPIDE
     Indication: Chronic graft versus host disease
     Dosage: OPTHALMIC SUSPENSION
     Route: 047
     Dates: start: 20200930
  31. OLOPATADINE [Concomitant]
     Active Substance: OLOPATADINE
     Indication: Pruritus
     Route: 048
     Dates: start: 20210804, end: 20210820
  32. OLOPATADINE [Concomitant]
     Active Substance: OLOPATADINE
     Route: 048
     Dates: start: 20210901, end: 20210905
  33. OLOPATADINE [Concomitant]
     Active Substance: OLOPATADINE
     Route: 048
     Dates: start: 20210906
  34. BETAMETHASONE BUTYRATE PROPIONATE [Concomitant]
     Active Substance: BETAMETHASONE BUTYRATE PROPIONATE
     Indication: Pruritus
     Route: 061
     Dates: start: 20210804
  35. FUROSEMIDE [Concomitant]
     Active Substance: FUROSEMIDE
     Indication: Cardiac failure

REACTIONS (2)
  - Atrial flutter [Recovered/Resolved]
  - Renal impairment [Not Recovered/Not Resolved]

NARRATIVE: CASE EVENT DATE: 20210825
